FAERS Safety Report 9758733 (Version 1)
Quarter: 2013Q4

REPORT INFORMATION
  Report Type: Spontaneous
  Country: US (occurrence: None)
  Receive Date: 20131216
  Receipt Date: 20131216
  Transmission Date: 20140711
  Serious: Yes (Other)
  Sender: FDA-Public Use
  Company Number: 057702

PATIENT
  Age: 27 Year
  Sex: Male
  Weight: 74 kg

DRUGS (1)
  1. CIMZIA [Suspect]
     Indication: CROHN^S DISEASE
     Dosage: (400 MG 1X/4 WEEKS, EXPIRY DATE: ??-OCT-2013 INTRAMUSCULAR)

REACTIONS (5)
  - Bowel movement irregularity [None]
  - Fatigue [None]
  - Dizziness [None]
  - Heart rate decreased [None]
  - Blood pressure decreased [None]
